FAERS Safety Report 5382775-0 (Version None)
Quarter: 2007Q3

REPORT INFORMATION
  Report Type: 
  Country: None (occurrence: None)
  Receive Date: 20070705
  Receipt Date: 20070625
  Transmission Date: 20080115
  Serious: Yes (Hospitalization)
  Sender: FDA-Public Use
  Company Number: 2007US001486

PATIENT
  Age: 49 Year
  Sex: Female

DRUGS (1)
  1. VESICARE [Suspect]
     Indication: DRUG USE FOR UNKNOWN INDICATION
     Dosage: 10 MG, ORAL
     Route: 048

REACTIONS (5)
  - DRUG DOSE OMISSION [None]
  - LUNG DISORDER [None]
  - PO2 DECREASED [None]
  - POLLAKIURIA [None]
  - URINARY INCONTINENCE [None]
